FAERS Safety Report 19754553 (Version 1)
Quarter: 2021Q3

REPORT INFORMATION
  Report Type: Spontaneous
  Country: US (occurrence: US)
  Receive Date: 20210824
  Receipt Date: 20210824
  Transmission Date: 20211014
  Serious: Yes (Hospitalization)
  Sender: FDA-Public Use
  Company Number: None

PATIENT
  Sex: Male

DRUGS (3)
  1. VIOKACE [Concomitant]
     Active Substance: PANCRELIPASE AMYLASE\PANCRELIPASE LIPASE\PANCRELIPASE PROTEASE
  2. VIOKACE [Suspect]
     Active Substance: PANCRELIPASE AMYLASE\PANCRELIPASE LIPASE\PANCRELIPASE PROTEASE
     Indication: CYSTIC FIBROSIS
     Dosage: ?          OTHER DOSE:20880?78300 UNIT; TAKE 1.5 TABLET BY MOUTH BTWICE DAILY WITH MORNING AND THE EVENING BOLUS FEEDS AND 4 TABLETS WITH OVERNIGHT TUBE FEED?
     Route: 048
     Dates: start: 20210521
  3. SMZ?TMP SUS [Concomitant]

REACTIONS (1)
  - Pneumonia [None]
